FAERS Safety Report 20616443 (Version 1)
Quarter: 2022Q1

REPORT INFORMATION
  Report Type: Spontaneous
  Country: US (occurrence: US)
  Receive Date: 20220321
  Receipt Date: 20220321
  Transmission Date: 20220423
  Serious: No
  Sender: FDA-Public Use
  Company Number: US-SA-SAC20220315000866

PATIENT
  Age: 63 Year
  Sex: Male

DRUGS (9)
  1. DUPIXENT [Suspect]
     Active Substance: DUPILUMAB
     Indication: Dermatitis atopic
     Dosage: 300 MG, QOW
     Route: 058
     Dates: start: 20220110
  2. MELATONIN [Suspect]
     Active Substance: MELATONIN
     Indication: Insomnia
  3. VITAMIN D3 [Concomitant]
     Active Substance: CHOLECALCIFEROL
  4. FINASTERIDE [Concomitant]
     Active Substance: FINASTERIDE
  5. CLOBETASOL PROPIONATE [Concomitant]
     Active Substance: CLOBETASOL PROPIONATE
  6. FISH OIL\OMEGA-3 FATTY ACIDS [Concomitant]
     Active Substance: FISH OIL\OMEGA-3 FATTY ACIDS
  7. B12 ACTIVE [Concomitant]
  8. VITAMINS [Concomitant]
     Active Substance: VITAMINS
  9. DOXAZOSIN MESYLATE [Concomitant]
     Active Substance: DOXAZOSIN MESYLATE

REACTIONS (2)
  - Pruritus [Unknown]
  - Insomnia [Unknown]
